FAERS Safety Report 6508960-X (Version None)
Quarter: 2009Q4

REPORT INFORMATION
  Report Type: 
  Country: None (occurrence: None)
  Receive Date: 20091221
  Receipt Date: 20090915
  Transmission Date: 20100525
  Serious: No
  Sender: FDA-Public Use
  Company Number: US-ASTRAZENECA-2009SE13232

PATIENT
  Sex: Female
  Weight: 72.6 kg

DRUGS (5)
  1. CRESTOR [Suspect]
     Indication: CORONARY ARTERY DISEASE
     Route: 048
     Dates: start: 20090815
  2. SYNTHROID [Concomitant]
  3. LISINOPRIL [Concomitant]
  4. VITAMINS Q10 AND D3 [Concomitant]
  5. FISH OIL [Concomitant]

REACTIONS (4)
  - ABDOMINAL DISTENSION [None]
  - HEADACHE [None]
  - INSOMNIA [None]
  - NAUSEA [None]
